FAERS Safety Report 13630790 (Version 1)
Quarter: 2017Q2

REPORT INFORMATION
  Report Type: Spontaneous
  Country: US (occurrence: US)
  Receive Date: 20170531
  Receipt Date: 20170531
  Transmission Date: 20170830
  Serious: No
  Sender: FDA-Public Use
  Company Number: US-ASTELLAS-1329321

PATIENT
  Sex: Female

DRUGS (3)
  1. AFATINIB [Concomitant]
     Active Substance: AFATINIB
  2. TARCEVA [Suspect]
     Active Substance: ERLOTINIB HYDROCHLORIDE
     Indication: NON-SMALL CELL LUNG CANCER
     Route: 065
     Dates: start: 201108, end: 20131216
  3. TARCEVA [Suspect]
     Active Substance: ERLOTINIB HYDROCHLORIDE
     Route: 065
     Dates: start: 20130519

REACTIONS (7)
  - Drug resistance [Unknown]
  - Diarrhoea [Recovered/Resolved]
  - Rash pruritic [Recovering/Resolving]
  - Dry skin [Not Recovered/Not Resolved]
  - Drug effect decreased [Unknown]
  - Carcinoembryonic antigen increased [Unknown]
  - Metastases to spine [Unknown]
